FAERS Safety Report 10664160 (Version 1)
Quarter: 2014Q4

REPORT INFORMATION
  Report Type: Spontaneous
  Country: US (occurrence: US)
  Receive Date: 20141219
  Receipt Date: 20141219
  Transmission Date: 20150529
  Serious: Yes (Other)
  Sender: FDA-Public Use
  Company Number: US-BEH-2014047186

PATIENT
  Sex: Male

DRUGS (2)
  1. TERAZOSIN HCL [Suspect]
     Active Substance: TERAZOSIN HYDROCHLORIDE
     Indication: RENAL DISORDER
     Dosage: DURATION OF THERAPY - PAST 6-7 YEARS
  2. HIZENTRA [Suspect]
     Active Substance: HUMAN IMMUNOGLOBULIN G

REACTIONS (2)
  - Dizziness [Unknown]
  - Staphylococcal infection [Unknown]
